FAERS Safety Report 7766341-5 (Version None)
Quarter: 2011Q3

REPORT INFORMATION
  Report Type: 
  Country: None (occurrence: None)
  Receive Date: 20110922
  Receipt Date: 20110914
  Transmission Date: 20111222
  Serious: No
  Sender: FDA-Public Use
  Company Number: US-BIOGENIDEC-2011BI019866

PATIENT
  Sex: Male

DRUGS (1)
  1. TYSABRI [Suspect]
     Indication: MULTIPLE SCLEROSIS
     Route: 042
     Dates: start: 20110203

REACTIONS (6)
  - MUSCULOSKELETAL STIFFNESS [None]
  - DRUG INEFFECTIVE [None]
  - SENSATION OF HEAVINESS [None]
  - PERIPHERAL COLDNESS [None]
  - URINARY RETENTION [None]
  - ASTHENIA [None]
